FAERS Safety Report 10628175 (Version 2)
Quarter: 2014Q4

REPORT INFORMATION
  Report Type: Spontaneous
  Country: US (occurrence: US)
  Receive Date: 20141205
  Receipt Date: 20141205
  Transmission Date: 20150529
  Serious: Yes (Hospitalization)
  Sender: FDA-Public Use
  Company Number: US-BRISTOL-MYERS SQUIBB COMPANY-21119409

PATIENT
  Age: 44 Year
  Sex: Male
  Weight: 96.14 kg

DRUGS (6)
  1. ERBITUX [Suspect]
     Active Substance: CETUXIMAB
     Dates: start: 2014
  2. GLYBURIDE. [Concomitant]
     Active Substance: GLYBURIDE
  3. METOPROLOL TARTRATE. [Concomitant]
     Active Substance: METOPROLOL TARTRATE
  4. OXYCODONE [Concomitant]
     Active Substance: OXYCODONE
  5. DILAUDID [Concomitant]
     Active Substance: HYDROMORPHONE HYDROCHLORIDE
  6. XANAX [Concomitant]
     Active Substance: ALPRAZOLAM

REACTIONS (8)
  - Weight fluctuation [Unknown]
  - Nausea [Unknown]
  - Skin disorder [Unknown]
  - Nail disorder [Unknown]
  - Rash [Unknown]
  - Diarrhoea [Unknown]
  - Kidney infection [Unknown]
  - Vomiting [Unknown]

NARRATIVE: CASE EVENT DATE: 2014
